FAERS Safety Report 8210303-0 (Version None)
Quarter: 2012Q1

REPORT INFORMATION
  Report Type: 
  Country: None (occurrence: None)
  Receive Date: 20120314
  Receipt Date: 20120106
  Transmission Date: 20120608
  Serious: Yes (Hospitalization)
  Sender: FDA-Public Use
  Company Number: US-ASTRAZENECA-2011SE42843

PATIENT
  Age: 29 Year
  Sex: Male

DRUGS (19)
  1. SEROQUEL [Suspect]
     Route: 048
  2. BACLOFEN [Concomitant]
  3. DEPAKOTE [Concomitant]
  4. OXYBUTININ [Concomitant]
  5. NEURONTIN [Concomitant]
  6. BUSPAR [Concomitant]
     Dosage: ONE AND A HALF TWICE DAY AND PRN (AS REQUIRED)
  7. XANAX [Concomitant]
     Dosage: OCCASIONALLY EXTRA DOSAGE
  8. TOPROL-XL [Suspect]
     Route: 048
  9. GABAPENTIN [Suspect]
     Route: 065
  10. ZONEGRAN [Concomitant]
  11. ZOMIG [Suspect]
     Dosage: PRN (AS REQUIRED)
     Route: 045
  12. SEROQUEL [Suspect]
     Dosage: OCCASIONALLY EXTRA
     Route: 048
  13. BACLOFEN [Concomitant]
  14. SYNTHROID [Concomitant]
  15. REBIF [Suspect]
     Route: 058
  16. OXYCODONE HCL [Concomitant]
     Dosage: RARELY
  17. ZOMIG [Suspect]
     Indication: HEADACHE
     Route: 045
  18. XANAX [Concomitant]
  19. DEPAKOTE [Concomitant]

REACTIONS (10)
  - LYME DISEASE [None]
  - PAIN [None]
  - MULTIPLE SCLEROSIS [None]
  - INFLUENZA LIKE ILLNESS [None]
  - URINARY INCONTINENCE [None]
  - DYSPNOEA [None]
  - MIGRAINE [None]
  - BIPOLAR DISORDER [None]
  - OBESITY [None]
  - PYREXIA [None]
